FAERS Safety Report 19117865 (Version 2)
Quarter: 2021Q2

REPORT INFORMATION
  Report Type: Report from Study
  Country: BR (occurrence: BR)
  Receive Date: 20210409
  Receipt Date: 20210415
  Transmission Date: 20210717
  Serious: Yes (Life-Threatening, Hospitalization, Other)
  Sender: FDA-Public Use
  Company Number: BR-ALXN-A202103400AA

PATIENT
  Age: 28 Year
  Sex: Male
  Weight: 69 kg

DRUGS (3)
  1. SOLIRIS [Suspect]
     Active Substance: ECULIZUMAB
     Dosage: 900 MG, Q2W
     Route: 042
     Dates: start: 20160711
  2. FOLIC ACID. [Concomitant]
     Active Substance: FOLIC ACID
     Indication: PRODUCT USED FOR UNKNOWN INDICATION
     Dosage: UNK
     Route: 065
  3. SOLIRIS [Suspect]
     Active Substance: ECULIZUMAB
     Indication: PAROXYSMAL NOCTURNAL HAEMOGLOBINURIA
     Dosage: 600 MG, QW
     Route: 042
     Dates: start: 20160613, end: 20160704

REACTIONS (9)
  - Anaemia [Unknown]
  - Paroxysmal nocturnal haemoglobinuria [Unknown]
  - Haematuria [Unknown]
  - Renal failure [Unknown]
  - Haemolysis [Unknown]
  - Inappropriate schedule of product administration [Unknown]
  - Condition aggravated [Unknown]
  - Pain [Unknown]
  - Thrombosis [Unknown]

NARRATIVE: CASE EVENT DATE: 202102
